FAERS Safety Report 9115594 (Version 1)
Quarter: 2013Q1

REPORT INFORMATION
  Report Type: Spontaneous
  Country: US (occurrence: US)
  Receive Date: 20130225
  Receipt Date: 20130225
  Transmission Date: 20140127
  Serious: Yes (Hospitalization, Disabling)
  Sender: FDA-Public Use
  Company Number: US-BAYER-2013-021748

PATIENT
  Age: 21 Year
  Sex: Female
  Weight: 95 kg

DRUGS (5)
  1. YASMIN [Suspect]
  2. YAZ [Suspect]
  3. PROVENTIL [Concomitant]
     Route: 045
  4. VITAMIN D [Concomitant]
  5. CLINDAMYCIN [Concomitant]
     Dosage: 150 MG, UNK

REACTIONS (1)
  - Pelvic venous thrombosis [Recovered/Resolved]
